FAERS Safety Report 7700784-0 (Version None)
Quarter: 2011Q3

REPORT INFORMATION
  Report Type: 
  Country: None (occurrence: None)
  Receive Date: 20110822
  Receipt Date: 20110810
  Transmission Date: 20111222
  Serious: Yes (Life-Threatening, Other)
  Sender: FDA-Public Use
  Company Number: JP-CELGENEUS-TAJPN-10-0762

PATIENT
  Sex: Female
  Weight: 40 kg

DRUGS (6)
  1. ABRAXANE [Suspect]
     Dosage: 350 MILLIGRAM
     Route: 065
     Dates: start: 20101015, end: 20101015
  2. MEROPENEM [Concomitant]
     Indication: PSOAS ABSCESS
     Dates: start: 20101025, end: 20101101
  3. HERCEPTIN [Concomitant]
     Indication: BREAST CANCER METASTATIC
     Dates: start: 20060803, end: 20101111
  4. TYKERB [Concomitant]
     Indication: BREAST CANCER METASTATIC
     Dosage: 750 MILLIGRAM
     Dates: start: 20100407, end: 20101111
  5. POLYGAM S/D [Concomitant]
     Route: 065
     Dates: start: 20101025, end: 20101028
  6. ABRAXANE [Suspect]
     Dosage: 280 MILLIGRAM
     Route: 065
     Dates: start: 20101119, end: 20101119

REACTIONS (5)
  - SEPSIS [None]
  - NEUTROPHIL COUNT DECREASED [None]
  - C-REACTIVE PROTEIN INCREASED [None]
  - WHITE BLOOD CELL COUNT DECREASED [None]
  - HAEMOGLOBIN DECREASED [None]
